FAERS Safety Report 4611074-7 (Version None)
Quarter: 2005Q1

REPORT INFORMATION
  Report Type: 
  Country: None (occurrence: None)
  Receive Date: 20050316
  Receipt Date: 20050316
  Transmission Date: 20050727
  Serious: No
  Sender: FDA-Public Use
  Company Number: None

PATIENT
  Age: 56 Year
  Sex: Male
  Weight: 97.5 kg

DRUGS (9)
  1. ZITHROMAX [Suspect]
     Indication: UPPER RESPIRATORY TRACT INFECTION
     Dosage: 250MG, 250MG  QD, ORAL
     Route: 048
  2. DM 10/GUAIFENESN [Concomitant]
  3. BENZTROPINE MESYLATE [Concomitant]
  4. QUETIAPINE FUMARATE [Concomitant]
  5. VENLAFAXINE HCL [Concomitant]
  6. GABAPENTIN [Concomitant]
  7. TERAZOSIN HCL [Concomitant]
  8. OMEPRAZOLE [Concomitant]
  9. METHOCARBAMOL [Concomitant]

REACTIONS (1)
  - RASH [None]
